FAERS Safety Report 9478398 (Version 3)
Quarter: 2013Q4

REPORT INFORMATION
  Report Type: Report from Study
  Country: CA (occurrence: CA)
  Receive Date: 20130827
  Receipt Date: 20131021
  Transmission Date: 20140711
  Serious: Yes (Other)
  Sender: FDA-Public Use
  Company Number: CA-JNJFOC-20130619860

PATIENT
  Age: 61 Year
  Sex: Male
  Weight: 60.9 kg

DRUGS (12)
  1. REMICADE [Suspect]
     Indication: CROHN^S DISEASE
     Route: 042
     Dates: start: 20130513
  2. REMICADE [Suspect]
     Indication: CROHN^S DISEASE
     Route: 042
     Dates: start: 201308
  3. REMICADE [Suspect]
     Indication: CROHN^S DISEASE
     Route: 042
     Dates: start: 2013
  4. BISOPROLOL [Concomitant]
     Route: 065
  5. CLOPIDOGREL [Concomitant]
     Route: 065
  6. RAMIPRIL [Concomitant]
     Route: 065
  7. ATORVASTATIN [Concomitant]
     Route: 065
  8. ACETYL SALICYLIC ACID [Concomitant]
     Route: 065
  9. CIPROFLOXACIN [Concomitant]
     Route: 065
  10. TYLENOL 3 [Concomitant]
     Route: 065
  11. HYDROMORPHONE [Concomitant]
     Route: 065
  12. NITRO SPRAY [Concomitant]
     Route: 065

REACTIONS (2)
  - Fistula [Not Recovered/Not Resolved]
  - Rash [Recovering/Resolving]
